FAERS Safety Report 5696325-2 (Version None)
Quarter: 2008Q2

REPORT INFORMATION
  Report Type: 
  Country: None (occurrence: None)
  Receive Date: 20080407
  Receipt Date: 20080328
  Transmission Date: 20081010
  Serious: Yes (Hospitalization)
  Sender: FDA-Public Use
  Company Number: AT-PFIZER INC-2007105996

PATIENT
  Sex: Male
  Weight: 100 kg

DRUGS (12)
  1. MARAVIROC [Suspect]
     Indication: HIV INFECTION
     Route: 048
  2. MK-0518 [Interacting]
     Indication: HIV INFECTION
     Route: 048
  3. NORVASC [Interacting]
     Indication: HYPERTENSION
     Route: 048
  4. BLOPRESS [Interacting]
     Indication: HYPERTENSION
     Route: 048
  5. RAMIPRIL [Interacting]
     Indication: HYPERTENSION
     Route: 048
     Dates: start: 20071204, end: 20071211
  6. ACTOS [Concomitant]
     Route: 048
  7. METFORMIN HCL [Concomitant]
     Route: 048
  8. EPIVIR [Concomitant]
     Route: 048
  9. NORVIR [Concomitant]
     Route: 048
  10. EBRANTIL [Concomitant]
     Route: 048
  11. INTELENCE [Concomitant]
     Route: 048
  12. TMC114 [Concomitant]
     Route: 048

REACTIONS (2)
  - DRUG INTERACTION [None]
  - HYPERTENSIVE CRISIS [None]
